FAERS Safety Report 8445345-3 (Version None)
Quarter: 2012Q2

REPORT INFORMATION
  Report Type: 
  Country: None (occurrence: None)
  Receive Date: 20120618
  Receipt Date: 20120222
  Transmission Date: 20120825
  Serious: No
  Sender: FDA-Public Use
  Company Number: US-TEVA-324173USA

PATIENT
  Age: 34 Year
  Sex: Female

DRUGS (1)
  1. FENTORA [Suspect]
     Route: 002

REACTIONS (3)
  - NIGHT SWEATS [None]
  - DIZZINESS [None]
  - MIGRAINE [None]
